FAERS Safety Report 15787072 (Version 1)
Quarter: 2019Q1

REPORT INFORMATION
  Report Type: Spontaneous
  Country: US (occurrence: US)
  Receive Date: 20190103
  Receipt Date: 20190103
  Transmission Date: 20190417
  Serious: Yes (Other)
  Sender: FDA-Public Use
  Company Number: US-TEVA-2018-US-993460

PATIENT
  Age: 23 Year
  Sex: Male

DRUGS (15)
  1. METHOTREXATE. [Suspect]
     Active Substance: METHOTREXATE
     Indication: RETINAL VASCULITIS
  2. PREDNISOLONE ACETATE. [Suspect]
     Active Substance: PREDNISOLONE ACETATE
     Indication: IMMUNOSUPPRESSANT DRUG THERAPY
  3. PREDNISONE. [Suspect]
     Active Substance: PREDNISONE
     Indication: UVEITIS
     Route: 048
  4. CYCLOSPORINE A [Suspect]
     Active Substance: CYCLOSPORINE
     Indication: IMMUNOSUPPRESSANT DRUG THERAPY
  5. PREDNISONE. [Suspect]
     Active Substance: PREDNISONE
     Route: 048
  6. PREDNISONE. [Suspect]
     Active Substance: PREDNISONE
     Route: 048
  7. CYCLOSPORINE A [Suspect]
     Active Substance: CYCLOSPORINE
     Indication: UVEITIS
     Route: 048
  8. PREDNISOLONE ACETATE. [Suspect]
     Active Substance: PREDNISOLONE ACETATE
     Indication: RETINAL VASCULITIS
  9. PREDNISONE. [Suspect]
     Active Substance: PREDNISONE
     Indication: STEROID THERAPY
     Dosage: DOSE REDUCED TO 20 MG
     Route: 048
  10. PREDNISONE. [Suspect]
     Active Substance: PREDNISONE
     Indication: RETINAL VASCULITIS
     Route: 048
  11. METHOTREXATE. [Suspect]
     Active Substance: METHOTREXATE
     Indication: STEROID THERAPY
     Route: 048
  12. METHOTREXATE. [Suspect]
     Active Substance: METHOTREXATE
     Indication: UVEITIS
     Route: 058
  13. PREDNISOLONE ACETATE. [Suspect]
     Active Substance: PREDNISOLONE ACETATE
     Indication: UVEITIS
     Route: 061
  14. CYCLOSPORINE A [Suspect]
     Active Substance: CYCLOSPORINE
     Indication: RETINAL VASCULITIS
     Route: 048
  15. BEVACIZUMAB. [Concomitant]
     Active Substance: BEVACIZUMAB
     Indication: ANTIANGIOGENIC THERAPY
     Route: 050

REACTIONS (3)
  - Cushingoid [Unknown]
  - Intraocular pressure increased [Recovering/Resolving]
  - Treatment failure [Unknown]
